FAERS Safety Report 12411932 (Version 3)
Quarter: 2016Q3

REPORT INFORMATION
  Report Type: Spontaneous
  Country: FR (occurrence: FR)
  Receive Date: 20160527
  Receipt Date: 20160729
  Transmission Date: 20161109
  Serious: Yes (Other)
  Sender: FDA-Public Use
  Company Number: FR-PFIZER INC-2016269607

PATIENT
  Age: 75 Year
  Sex: Male
  Weight: 56 kg

DRUGS (12)
  1. TAHOR [Suspect]
     Active Substance: ATORVASTATIN CALCIUM
     Dosage: 80 MG, 1X/DAY
     Route: 048
     Dates: start: 20160330, end: 20160408
  2. INEXIUM [Concomitant]
     Active Substance: ESOMEPRAZOLE
     Dosage: 20 MG, 1X/DAY
     Route: 048
     Dates: start: 20160221
  3. TRIATEC [Concomitant]
     Active Substance: RAMIPRIL
     Dosage: 1.25 MG, 2X/DAY
     Route: 048
     Dates: start: 20160422
  4. TAHOR [Suspect]
     Active Substance: ATORVASTATIN CALCIUM
     Indication: PROPHYLAXIS
     Dosage: 80 MG, 1X/DAY
     Route: 048
     Dates: start: 20160221, end: 20160225
  5. KARDEGIC [Concomitant]
     Active Substance: ASPIRIN LYSINE
     Dosage: 75 MG, 1X/DAY
     Route: 048
     Dates: start: 20160221
  6. TAHOR [Suspect]
     Active Substance: ATORVASTATIN CALCIUM
     Dosage: 80 MG, 2X/DAY
     Route: 048
     Dates: start: 20160226, end: 20160330
  7. BRILIQUE [Concomitant]
     Active Substance: TICAGRELOR
     Dosage: 90 MG, 2X/DAY
     Route: 048
     Dates: start: 20160221
  8. BISOCE [Concomitant]
     Active Substance: BISOPROLOL
     Dosage: 1.25 MG, 2X/DAY
     Route: 048
     Dates: start: 20160221
  9. TRIATEC [Concomitant]
     Active Substance: RAMIPRIL
     Dosage: 1.25 MG, 2X/DAY
     Route: 048
     Dates: start: 20160221, end: 20160408
  10. TAHOR [Suspect]
     Active Substance: ATORVASTATIN CALCIUM
     Dosage: 80 MG, 2X/DAY
     Route: 048
     Dates: start: 20160420, end: 20160427
  11. FUROSEMIDE. [Concomitant]
     Active Substance: FUROSEMIDE
     Dosage: UNK
     Route: 048
     Dates: start: 20160423
  12. MODOPAR [Concomitant]
     Active Substance: BENSERAZIDE HYDROCHLORIDE\LEVODOPA
     Indication: PARKINSON^S DISEASE
     Dosage: 250 MG, 3X/DAY
     Route: 048

REACTIONS (7)
  - Drug prescribing error [Unknown]
  - Accidental overdose [Unknown]
  - Cholestasis [Recovering/Resolving]
  - Liver injury [Unknown]
  - Rhabdomyolysis [Unknown]
  - Renal failure [Unknown]
  - Fall [Unknown]

NARRATIVE: CASE EVENT DATE: 2016
